FAERS Safety Report 8874447 (Version 4)
Quarter: 2013Q2

REPORT INFORMATION
  Report Type: Report from Study
  Country: BR (occurrence: BR)
  Receive Date: 20121031
  Receipt Date: 20130420
  Transmission Date: 20140414
  Serious: Yes (Hospitalization)
  Sender: FDA-Public Use
  Company Number: BR-US-EMD SERONO, INC.-7170291

PATIENT
  Age: 50 Year
  Sex: Female

DRUGS (4)
  1. REBIF [Suspect]
     Indication: PRODUCT USED FOR UNKNOWN INDICATION
     Dates: start: 20090120, end: 20120915
  2. PANTOPRAZOLE [Concomitant]
     Indication: GASTRIC DISORDER
  3. VITAMIN D [Concomitant]
     Indication: PRODUCT USED FOR UNKNOWN INDICATION
  4. CALCIUM [Concomitant]
     Indication: PRODUCT USED FOR UNKNOWN INDICATION

REACTIONS (11)
  - Serum ferritin increased [Recovered/Resolved]
  - Multiple sclerosis relapse [Not Recovered/Not Resolved]
  - Malaise [Recovering/Resolving]
  - Cardiovascular disorder [Unknown]
  - Dizziness [Unknown]
  - Balance disorder [Unknown]
  - Head discomfort [Unknown]
  - Blood cholesterol [Unknown]
  - Headache [Unknown]
  - Myalgia [Unknown]
  - Pain [Unknown]
